FAERS Safety Report 19879206 (Version 1)
Quarter: 2021Q3

REPORT INFORMATION
  Report Type: Spontaneous
  Country: US (occurrence: US)
  Receive Date: 20210924
  Receipt Date: 20210924
  Transmission Date: 20211014
  Serious: Yes (Life-Threatening, Hospitalization)
  Sender: FDA-Public Use
  Company Number: None

PATIENT
  Age: 52 Year
  Sex: Female
  Weight: 54.9 kg

DRUGS (12)
  1. CLOZAPINE. [Suspect]
     Active Substance: CLOZAPINE
     Indication: SCHIZOAFFECTIVE DISORDER
  2. MIDODRINE [Concomitant]
     Active Substance: MIDODRINE
  3. NON?COMPLIANT WITH LAXATIVES. [Concomitant]
  4. LEVOTHYROXINE. [Concomitant]
     Active Substance: LEVOTHYROXINE
  5. BENZTROPINE. [Concomitant]
     Active Substance: BENZTROPINE
  6. LEVETIRACETAM. [Concomitant]
     Active Substance: LEVETIRACETAM
  7. PANTOPRAZOLE [Concomitant]
     Active Substance: PANTOPRAZOLE
  8. LACTULOSE. [Concomitant]
     Active Substance: LACTULOSE
  9. MIRALAX [Suspect]
     Active Substance: POLYETHYLENE GLYCOL 3350
  10. BISACODYL. [Concomitant]
     Active Substance: BISACODYL
  11. FLUDROCORTISONE [Concomitant]
     Active Substance: FLUDROCORTISONE
  12. SS INSULIN [Concomitant]

REACTIONS (19)
  - Orthostatic hypotension [None]
  - Weight decreased [None]
  - COVID-19 [None]
  - Confusional state [None]
  - Pneumonia [None]
  - Hepatitis cholestatic [None]
  - Alanine aminotransferase increased [None]
  - Dizziness [None]
  - Constipation [None]
  - Aspartate aminotransferase increased [None]
  - Dyspnoea [None]
  - Fall [None]
  - Vomiting [None]
  - Unresponsive to stimuli [None]
  - Gait disturbance [None]
  - Blood alkaline phosphatase increased [None]
  - Hepatic steatosis [None]
  - Mental status changes [None]
  - Dehydration [None]

NARRATIVE: CASE EVENT DATE: 20210519
